FAERS Safety Report 10067984 (Version 2)
Quarter: 2014Q2

REPORT INFORMATION
  Report Type: Spontaneous
  Country: RU (occurrence: RU)
  Receive Date: 20140409
  Receipt Date: 20140414
  Transmission Date: 20141212
  Serious: Yes (Other)
  Sender: FDA-Public Use
  Company Number: RU-PFIZER INC-2014094649

PATIENT
  Age: 72 Year
  Sex: Male

DRUGS (2)
  1. SUTENT [Suspect]
     Indication: METASTATIC RENAL CELL CARCINOMA
     Dosage: 50 MG, CYCLIC (ONE A DAY FOR 4 WEEKS FOLLOWED BY 2 WEEKS OFF)
     Route: 048
     Dates: start: 201111, end: 201208
  2. SUTENT [Suspect]
     Dosage: 50 MG, CYCLIC (ONE A DAY FOR 4 WEEKS FOLLOWED BY 2 WEEKS OFF)
     Route: 048
     Dates: start: 201208, end: 201310

REACTIONS (7)
  - Hypothyroidism [Recovering/Resolving]
  - Laryngeal oedema [Recovered/Resolved]
  - Tongue oedema [Recovered/Resolved]
  - Face oedema [Recovered/Resolved]
  - Fatigue [Not Recovered/Not Resolved]
  - Disease progression [Unknown]
  - Metastatic renal cell carcinoma [Unknown]
